FAERS Safety Report 8107607 (Version 3)
Quarter: 2016Q4

REPORT INFORMATION
  Report Type: Report from Study
  Country: US (occurrence: US)
  Receive Date: 20110825
  Receipt Date: 20161129
  Transmission Date: 20170207
  Serious: Yes (Hospitalization, Other)
  Sender: FDA-Public Use
  Company Number: US-BRISTOL-MYERS SQUIBB COMPANY-15945579

PATIENT
  Age: 56 Year
  Sex: Female
  Weight: 53.51 kg

DRUGS (24)
  1. FLORINEF ACETATE [Concomitant]
     Active Substance: FLUDROCORTISONE ACETATE
     Indication: PRODUCT USED FOR UNKNOWN INDICATION
     Dosage: .1 MG, BID
     Route: 048
     Dates: start: 20110721
  2. PALONOSETRON [Concomitant]
     Active Substance: PALONOSETRON
     Indication: PRODUCT USED FOR UNKNOWN INDICATION
     Dosage: UNK
     Route: 065
     Dates: start: 20100923
  3. PROCHLORPERAZINE. [Concomitant]
     Active Substance: PROCHLORPERAZINE
     Indication: PRODUCT USED FOR UNKNOWN INDICATION
     Dosage: EVERY 8 HRS
     Route: 054
     Dates: start: 20100923
  4. SODIUM CHLORIDE. [Concomitant]
     Active Substance: SODIUM CHLORIDE
     Indication: PRODUCT USED FOR UNKNOWN INDICATION
     Dosage: 2000 ML, UNK
     Route: 042
     Dates: start: 20110125
  5. CETUXIMAB [Suspect]
     Active Substance: CETUXIMAB
     Indication: HEAD AND NECK CANCER
     Dosage: INTERRUPTED ON 21JUL11(28D)RESUMED ON 11AUG2011  RECENT INF(4TH):21JUL11
     Route: 042
     Dates: start: 20110623
  6. DIPHENHYDRAMINE HCL [Concomitant]
     Active Substance: DIPHENHYDRAMINE HYDROCHLORIDE
     Indication: PRODUCT USED FOR UNKNOWN INDICATION
     Dosage: UNK
     Route: 065
     Dates: start: 20101228
  7. LEXAPRO [Concomitant]
     Active Substance: ESCITALOPRAM OXALATE
     Indication: PRODUCT USED FOR UNKNOWN INDICATION
     Dosage: 10 MG, QD
     Route: 048
  8. CISPLATIN. [Suspect]
     Active Substance: CISPLATIN
     Indication: HEAD AND NECK CANCER
     Dosage: INTERRUPTED ON 14JUL11(21D)RESUMED ON 11AUG11  RECENT INF(2ND):14JUL11
     Route: 042
     Dates: start: 20110623
  9. DEXAMETHASONE SODIUM PHOSPHATE. [Concomitant]
     Active Substance: DEXAMETHASONE SODIUM PHOSPHATE
     Indication: PRODUCT USED FOR UNKNOWN INDICATION
     Dosage: UNK
     Route: 065
     Dates: start: 20100923
  10. EMEND [Concomitant]
     Active Substance: APREPITANT
     Indication: PRODUCT USED FOR UNKNOWN INDICATION
     Dosage: 150 MG, QD
     Route: 042
     Dates: start: 20110623
  11. PEGFILGRASTIM [Concomitant]
     Active Substance: PEGFILGRASTIM
     Indication: PRODUCT USED FOR UNKNOWN INDICATION
     Dosage: 6 MG, TOTAL
     Route: 058
     Dates: start: 20101003
  12. RESTORIL [Concomitant]
     Active Substance: TEMAZEPAM
     Indication: PRODUCT USED FOR UNKNOWN INDICATION
     Dosage: I CAP AT BED TIME AS NEEDED
     Route: 048
     Dates: start: 20110713
  13. METFORMIN [Concomitant]
     Active Substance: METFORMIN HYDROCHLORIDE
     Indication: PRODUCT USED FOR UNKNOWN INDICATION
     Dosage: 1000 MG, BID
     Route: 048
  14. OMNIPAQUE [Concomitant]
     Active Substance: IOHEXOL
     Indication: PRODUCT USED FOR UNKNOWN INDICATION
     Dosage: 100ML(OF 300MG/ML) (100ML UNK)
     Route: 042
     Dates: start: 20101229
  15. PROMETHAZINE HCL [Concomitant]
     Active Substance: PROMETHAZINE HYDROCHLORIDE
     Indication: PRODUCT USED FOR UNKNOWN INDICATION
     Dosage: 13 MG, TOTAL
     Route: 042
     Dates: start: 20110627
  16. 5-FLUOROURACIL [Suspect]
     Active Substance: FLUOROURACIL
     Indication: HEAD AND NECK CANCER
     Dosage: INTERRUPTED ON 18JUL11(25D)RESUMED ON 11AUG11  RECENT INF(2ND):18JUL11
     Route: 042
     Dates: start: 20110623
  17. BACTRIM DS [Concomitant]
     Active Substance: SULFAMETHOXAZOLE\TRIMETHOPRIM
     Indication: PRODUCT USED FOR UNKNOWN INDICATION
     Dosage: 1DF:800-160MG
     Route: 048
     Dates: start: 20101005
  18. ZOFRAN [Concomitant]
     Active Substance: ONDANSETRON HYDROCHLORIDE
     Indication: PRODUCT USED FOR UNKNOWN INDICATION
     Dosage: 4 MG, PRN
     Route: 048
     Dates: start: 20100923
  19. LANSOPRAZOLE. [Concomitant]
     Active Substance: LANSOPRAZOLE
     Indication: PRODUCT USED FOR UNKNOWN INDICATION
     Route: 065
  20. PREVACID [Concomitant]
     Active Substance: LANSOPRAZOLE
     Indication: PRODUCT USED FOR UNKNOWN INDICATION
     Dosage: 30 MG, QD
     Route: 048
     Dates: start: 20110117
  21. PROCHLORPERAZINE MALEATE. [Concomitant]
     Active Substance: PROCHLORPERAZINE MALEATE
     Indication: PRODUCT USED FOR UNKNOWN INDICATION
     Dosage: EVERY 6 HRS
     Route: 048
     Dates: start: 20100923
  22. RANITIDINE HCL [Concomitant]
     Active Substance: RANITIDINE HYDROCHLORIDE
     Indication: PRODUCT USED FOR UNKNOWN INDICATION
     Dosage: 50MG IN NS 50ML
     Route: 042
     Dates: start: 20101228
  23. CALCIUM PHOSPHATE [Concomitant]
     Active Substance: CALCIUM PHOSPHATE
     Indication: PRODUCT USED FOR UNKNOWN INDICATION
     Route: 065
  24. MEGACE [Concomitant]
     Active Substance: MEGESTROL ACETATE
     Indication: PRODUCT USED FOR UNKNOWN INDICATION
     Dosage: 10 ML, BID
     Route: 048
     Dates: start: 20110721

REACTIONS (2)
  - Dehydration [Recovered/Resolved]
  - Clostridium difficile colitis [Recovered/Resolved]

NARRATIVE: CASE EVENT DATE: 20110727
